FAERS Safety Report 17198375 (Version 1)
Quarter: 2019Q4

REPORT INFORMATION
  Report Type: Spontaneous
  Country: DE (occurrence: DE)
  Receive Date: 20191225
  Receipt Date: 20191225
  Transmission Date: 20200122
  Serious: Yes (Other)
  Sender: FDA-Public Use
  Company Number: DE-AUROBINDO-AUR-APL-2019-105235

PATIENT
  Age: 6 Year
  Sex: Male

DRUGS (7)
  1. FOSFOMYCIN [Concomitant]
     Active Substance: FOSFOMYCIN
     Indication: BRAIN ABSCESS
  2. FOSFOMYCIN [Concomitant]
     Active Substance: FOSFOMYCIN
     Indication: ACINETOBACTER INFECTION
     Dosage: UNK
     Route: 065
  3. MEROPENEM POWDER FOR SOLUTION FOR INFUSION [Suspect]
     Active Substance: MEROPENEM
     Indication: BRAIN ABSCESS
     Dosage: 2 GRAM, FOUR TIMES/DAY
     Route: 042
  4. MEROPENEM POWDER FOR SOLUTION FOR INFUSION [Suspect]
     Active Substance: MEROPENEM
     Dosage: 15 G/DAY IN DOSES OF 2 G GIVEN OVER 3 H WITH A SINGLE DOSE OF 1 G/3 H ONCE DAILY
     Route: 042
  5. COLISTIN [Concomitant]
     Active Substance: COLISTIN
     Indication: BRAIN ABSCESS
  6. MEROPENEM POWDER FOR SOLUTION FOR INFUSION [Suspect]
     Active Substance: MEROPENEM
     Indication: ACINETOBACTER INFECTION
     Dosage: 10 GRAM, ONCE A DAY (INCREASED INITIALLY )
     Route: 042
  7. COLISTIN [Concomitant]
     Active Substance: COLISTIN
     Indication: ACINETOBACTER INFECTION
     Dosage: UNK
     Route: 065

REACTIONS (3)
  - Prescribed overdose [Unknown]
  - Vomiting [Unknown]
  - Impaired gastric emptying [Unknown]
